FAERS Safety Report 8286801-0 (Version None)
Quarter: 2012Q2

REPORT INFORMATION
  Report Type: 
  Country: None (occurrence: None)
  Receive Date: 20120416
  Receipt Date: 20120405
  Transmission Date: 20120825
  Serious: Yes (Other)
  Sender: FDA-Public Use
  Company Number: GB-BRISTOL-MYERS SQUIBB COMPANY-16440935

PATIENT
  Age: 75 Year
  Sex: Male

DRUGS (12)
  1. ATORVASTATIN [Suspect]
     Route: 065
  2. WARFARIN SODIUM [Suspect]
     Route: 065
  3. CYSTEINE [Suspect]
     Route: 065
  4. VERAPAMIL [Suspect]
     Route: 065
  5. METFORMIN HCL [Suspect]
     Route: 048
  6. FUROSEMIDE [Suspect]
     Route: 065
  7. FORMOTEROL FUMARATE [Suspect]
     Route: 055
  8. CARBOCISTEINE [Concomitant]
  9. FORMOTEROL [Suspect]
  10. RAMIPRIL [Suspect]
     Route: 065
  11. PREDNISOLONE [Suspect]
     Route: 065
  12. ALBUTEROL [Suspect]
     Route: 065

REACTIONS (1)
  - HALLUCINATION [None]
